FAERS Safety Report 25156268 (Version 2)
Quarter: 2025Q2

REPORT INFORMATION
  Report Type: Spontaneous
  Country: SI (occurrence: SI)
  Receive Date: 20250403
  Receipt Date: 20250530
  Transmission Date: 20250716
  Serious: Yes (Death, Hospitalization)
  Sender: EISAI
  Company Number: SI-Eisai-EC-2025-186926

PATIENT
  Age: 73 Year
  Sex: Female

DRUGS (5)
  1. LENVATINIB [Suspect]
     Active Substance: LENVATINIB
     Indication: Renal cancer
     Dates: start: 202412, end: 202501
  2. LENVATINIB [Suspect]
     Active Substance: LENVATINIB
     Dates: start: 202502, end: 202502
  3. LENVATINIB [Suspect]
     Active Substance: LENVATINIB
     Dates: start: 202503
  4. PEMBROLIZUMAB [Suspect]
     Active Substance: PEMBROLIZUMAB
     Indication: Renal cancer
     Dates: start: 202412, end: 202501
  5. PEMBROLIZUMAB [Suspect]
     Active Substance: PEMBROLIZUMAB
     Dates: start: 202502, end: 202502

REACTIONS (4)
  - Cardiac arrest [Fatal]
  - Myositis [Recovered/Resolved]
  - Autoimmune myocarditis [Recovered/Resolved]
  - Hepatitis [Unknown]

NARRATIVE: CASE EVENT DATE: 20250301
